FAERS Safety Report 13307667 (Version 1)
Quarter: 2017Q1

REPORT INFORMATION
  Report Type: Spontaneous
  Country: US (occurrence: US)
  Receive Date: 20170308
  Receipt Date: 20170308
  Transmission Date: 20170428
  Serious: Yes (Other)
  Sender: FDA-Public Use
  Company Number: US-ELI_LILLY_AND_COMPANY-US201703001459

PATIENT
  Sex: Male

DRUGS (8)
  1. CLOPIDOGREL [Concomitant]
     Active Substance: CLOPIDOGREL BISULFATE
  2. COLCHICINE. [Concomitant]
     Active Substance: COLCHICINE
     Indication: PRODUCT USED FOR UNKNOWN INDICATION
  3. GLIMEPIRIDE. [Concomitant]
     Active Substance: GLIMEPIRIDE
     Indication: PRODUCT USED FOR UNKNOWN INDICATION
  4. HUMALOG [Suspect]
     Active Substance: INSULIN LISPRO
     Indication: TYPE 2 DIABETES MELLITUS
     Dosage: UNK UNK, UNKNOWN
     Route: 065
     Dates: start: 201506
  5. GUANFACINE. [Concomitant]
     Active Substance: GUANFACINE
  6. PRAVASTATIN. [Concomitant]
     Active Substance: PRAVASTATIN
  7. VITAMIN D [Concomitant]
     Active Substance: CHOLECALCIFEROL
  8. LANTUS [Concomitant]
     Active Substance: INSULIN GLARGINE
     Indication: PRODUCT USED FOR UNKNOWN INDICATION

REACTIONS (7)
  - Arthritis [Unknown]
  - Joint injury [Unknown]
  - Pain [Unknown]
  - Cardiac failure congestive [Unknown]
  - Rotator cuff syndrome [Unknown]
  - Influenza [Recovered/Resolved]
  - Blood glucose increased [Unknown]
